FAERS Safety Report 7949827-X (Version None)
Quarter: 2011Q4

REPORT INFORMATION
  Report Type: 
  Country: None (occurrence: None)
  Receive Date: 20111130
  Receipt Date: 20111122
  Transmission Date: 20120403
  Serious: Yes (Death)
  Sender: FDA-Public Use
  Company Number: US-CELGENEUS-163-21880-11091387

PATIENT
  Sex: Male

DRUGS (2)
  1. REVLIMID [Suspect]
     Indication: MULTIPLE MYELOMA
     Dosage: 10 MILLIGRAM
     Route: 048
     Dates: start: 20101029
  2. REVLIMID [Suspect]
     Indication: AUTOLOGOUS BONE MARROW TRANSPLANTATION THERAPY

REACTIONS (3)
  - DYSGEUSIA [None]
  - DIARRHOEA [None]
  - COMPLETED SUICIDE [None]
